FAERS Safety Report 9511549 (Version 1)
Quarter: 2013Q1

REPORT INFORMATION
  Report Type: Spontaneous
  Country: US (occurrence: None)
  Receive Date: 20130305
  Receipt Date: 20130305
  Transmission Date: 20140127
  Serious: Yes (Other)
  Sender: FDA-Public Use
  Company Number: 163-21880-12051838

PATIENT
  Age: 63 Year
  Sex: Male
  Weight: 63.5 kg

DRUGS (5)
  1. REVLIMID (LENALIDOMIDE) (25 MILLIGRAM, CAPSULES) [Suspect]
     Indication: PLASMA CELL MYELOMA
     Dosage: 25 MG, Q DAY, PO
     Route: 048
     Dates: start: 20120509
  2. ALLOPURINOL (ALLOPURINOL) (UNKNOWN) [Concomitant]
  3. ATENOLOL (ATENOLOL) (UNKNOWN) [Concomitant]
  4. ATORVASTATIN (ATORVASTATIN) (UNKNOWN) [Concomitant]
  5. LEVOTHYROXINE (LEVOTHYROXINE) (UNKNOWN) [Concomitant]

REACTIONS (2)
  - Haemorrhoidal haemorrhage [None]
  - Condition aggravated [None]
